FAERS Safety Report 16249042 (Version 1)
Quarter: 2019Q2

REPORT INFORMATION
  Report Type: Spontaneous
  Country: US (occurrence: US)
  Receive Date: 20190429
  Receipt Date: 20190429
  Transmission Date: 20190711
  Serious: No
  Sender: FDA-Public Use
  Company Number: US-TEVA-2019-US-1041726

PATIENT
  Sex: Female

DRUGS (2)
  1. BUSPIRONE HYDROCHLORIDE. [Suspect]
     Active Substance: BUSPIRONE HYDROCHLORIDE
     Indication: ANXIETY
     Dosage: 10 MILLIGRAM DAILY;
     Dates: start: 20190403
  2. BUSPIRONE HYDROCHLORIDE. [Suspect]
     Active Substance: BUSPIRONE HYDROCHLORIDE
     Indication: OBSESSIVE-COMPULSIVE DISORDER
     Dates: start: 20190403

REACTIONS (6)
  - Decreased appetite [Unknown]
  - Anxiety [Unknown]
  - Tremor [Unknown]
  - Nervousness [Unknown]
  - Palpitations [Unknown]
  - Weight decreased [Unknown]

NARRATIVE: CASE EVENT DATE: 20190403
